FAERS Safety Report 18367731 (Version 1)
Quarter: 2020Q4

REPORT INFORMATION
  Report Type: Not Available
  Country: US (occurrence: US)
  Receive Date: 20201009
  Receipt Date: 20201009
  Transmission Date: 20210114
  Serious: No
  Sender: FDA-Public Use
  Company Number: US-C B FLEET CO INC-202002-US-000793

PATIENT
  Sex: Female

DRUGS (1)
  1. MONISTAT 7 7-DAY DISPOSABLE APPLICATORS [Suspect]
     Active Substance: MICONAZOLE NITRATE
     Indication: VAGINAL INFECTION
     Dosage: I ONLY USE THIS ONE FOR TWO DAYS
     Route: 067

REACTIONS (2)
  - Product use in unapproved indication [None]
  - Vaginal haemorrhage [Not Recovered/Not Resolved]
